FAERS Safety Report 14740460 (Version 1)
Quarter: 2018Q2

REPORT INFORMATION
  Report Type: Spontaneous
  Country: ES (occurrence: ES)
  Receive Date: 20180410
  Receipt Date: 20180410
  Transmission Date: 20180711
  Serious: Yes (Other)
  Sender: FDA-Public Use
  Company Number: ES-TEVA-2018-ES-879487

PATIENT
  Age: 53 Year
  Sex: Male

DRUGS (8)
  1. DENOSUMAB [Concomitant]
     Active Substance: DENOSUMAB
     Indication: PARAGANGLION NEOPLASM
     Route: 065
     Dates: start: 201411
  2. PROPRANOLOL [Concomitant]
     Active Substance: PROPRANOLOL HYDROCHLORIDE
     Route: 065
  3. LANREOTIDE [Suspect]
     Active Substance: LANREOTIDE
     Route: 065
     Dates: end: 201701
  4. LANREOTIDE [Suspect]
     Active Substance: LANREOTIDE
     Indication: PARAGANGLION NEOPLASM
     Route: 065
     Dates: start: 201411
  5. TEMOZOLOMIDE. [Suspect]
     Active Substance: TEMOZOLOMIDE
     Indication: PARAGANGLION NEOPLASM
     Dosage: 75 MG/M2 FOR 21 DAYS EVERY 28 DAYS
     Route: 065
     Dates: start: 2016, end: 2017
  6. DOXAZOSIN [Concomitant]
     Active Substance: DOXAZOSIN\DOXAZOSIN MESYLATE
     Indication: PARAGANGLION NEOPLASM
     Route: 065
  7. PROPRANOLOL [Concomitant]
     Active Substance: PROPRANOLOL HYDROCHLORIDE
     Indication: HYPERTENSION
     Route: 065
  8. BISOPROLOL [Concomitant]
     Active Substance: BISOPROLOL
     Indication: HYPERTENSION
     Route: 065

REACTIONS (6)
  - Hyperglycaemia [Unknown]
  - Nausea [Unknown]
  - Vomiting [Unknown]
  - Thrombocytopenia [Unknown]
  - Diarrhoea [Unknown]
  - Lymphopenia [Unknown]
